FAERS Safety Report 11897082 (Version 1)
Quarter: 2016Q1

REPORT INFORMATION
  Report Type: Report from Study
  Country: US (occurrence: US)
  Receive Date: 20160107
  Receipt Date: 20160107
  Transmission Date: 20160526
  Serious: Yes (Hospitalization)
  Sender: FDA-Public Use
  Company Number: US-BAUSCH-BL-2015-030229

PATIENT
  Age: 57 Year
  Sex: Female

DRUGS (1)
  1. XENAZINE [Suspect]
     Active Substance: TETRABENAZINE
     Indication: HUNTINGTON^S DISEASE
     Route: 048
     Dates: start: 20151204, end: 201512

REACTIONS (10)
  - Dry throat [Unknown]
  - Hyponatraemia [Unknown]
  - Restlessness [Not Recovered/Not Resolved]
  - Gait disturbance [Unknown]
  - Hallucination [Recovered/Resolved]
  - Asthenia [Unknown]
  - Drug ineffective [Not Recovered/Not Resolved]
  - Pallor [Unknown]
  - Malaise [Not Recovered/Not Resolved]
  - Insomnia [Unknown]

NARRATIVE: CASE EVENT DATE: 201512
